FAERS Safety Report 16739005 (Version 11)
Quarter: 2020Q1

REPORT INFORMATION
  Report Type: Spontaneous
  Country: JP (occurrence: JP)
  Receive Date: 20190826
  Receipt Date: 20200227
  Transmission Date: 20200409
  Serious: Yes (Hospitalization, Other)
  Sender: FDA-Public Use
  Company Number: JP-ASTELLAS-2019JP016321

PATIENT
  Age: 6 Decade
  Sex: Male

DRUGS (8)
  1. XOSPATA [Suspect]
     Active Substance: GILTERITINIB
     Route: 048
     Dates: start: 20190807, end: 20190828
  2. XOSPATA [Suspect]
     Active Substance: GILTERITINIB
     Route: 048
     Dates: start: 20191016, end: 20191031
  3. XOSPATA [Suspect]
     Active Substance: GILTERITINIB
     Indication: ACUTE MYELOID LEUKAEMIA RECURRENT
     Route: 048
     Dates: start: 20190718, end: 20190806
  4. VFEND [Concomitant]
     Active Substance: VORICONAZOLE
     Indication: PRODUCT USED FOR UNKNOWN INDICATION
     Dosage: UNK UNK, UNKNOWN FREQ.
     Route: 048
  5. PROGRAF [Suspect]
     Active Substance: TACROLIMUS
     Indication: BONE MARROW TRANSPLANT REJECTION
     Dosage: UNK UNK, UNKNOWN FREQ.
     Route: 048
  6. FLUCONAZOLE. [Concomitant]
     Active Substance: FLUCONAZOLE
     Indication: PRODUCT USED FOR UNKNOWN INDICATION
     Dosage: UNK UNK, UNKNOWN FREQ.
     Route: 048
  7. XOSPATA [Suspect]
     Active Substance: GILTERITINIB
     Route: 048
     Dates: start: 20191119
  8. PROGRAF [Suspect]
     Active Substance: TACROLIMUS
     Dosage: UNK UNK, UNKNOWN FREQ.
     Route: 048

REACTIONS (15)
  - Faeces soft [Recovered/Resolved]
  - Electrocardiogram QT prolonged [Recovered/Resolved]
  - Eosinophil count increased [Recovered/Resolved]
  - Neutrophil count decreased [Recovered/Resolved]
  - Rash [Recovered/Resolved]
  - Influenza [Recovered/Resolved]
  - Platelet count decreased [Recovered/Resolved]
  - Aspergillus infection [Not Recovered/Not Resolved]
  - Haematuria [Recovered/Resolved]
  - Drug level increased [Recovered/Resolved]
  - Bone marrow conditioning regimen [Recovered/Resolved]
  - Blast cell count increased [Recovered/Resolved]
  - Renal impairment [Recovered/Resolved]
  - Drug level increased [Recovered/Resolved]
  - Patient uncooperative [Not Recovered/Not Resolved]

NARRATIVE: CASE EVENT DATE: 20190813
